FAERS Safety Report 19931541 (Version 2)
Quarter: 2024Q2

REPORT INFORMATION
  Report Type: Report from Study
  Country: US (occurrence: US)
  Receive Date: 20211007
  Receipt Date: 20240527
  Transmission Date: 20240715
  Serious: Yes (Other)
  Sender: FDA-Public Use
  Company Number: US-BAUSCH-BL-2021-033865

PATIENT
  Age: 73 Year
  Sex: Female
  Weight: 72.186 kg

DRUGS (14)
  1. XIFAXAN [Suspect]
     Active Substance: RIFAXIMIN
     Indication: Hepatic encephalopathy
     Dosage: FOR A FEW YEARS
     Route: 048
  2. SPIRONOLACTONE [Concomitant]
     Active Substance: SPIRONOLACTONE
     Indication: Product used for unknown indication
     Dosage: SPIRONOLACTONE (SPIRONOLACTONE 100 MG ORAL TABLET) 150 MG 1.5 TAB(S)- ORAL - DAILY
     Route: 048
  3. LASIX [Concomitant]
     Active Substance: FUROSEMIDE
     Indication: Product used for unknown indication
     Route: 065
  4. VITAMIN D3 [Concomitant]
     Active Substance: CHOLECALCIFEROL
     Indication: Product used for unknown indication
     Dosage: CHOLECALCIFEROL (VITAMIN D3) 2,000 UNIT(S), ORAL- NIGHTLY (BEDTIME)
     Route: 048
  5. CYANOCOBALAMIN [Concomitant]
     Active Substance: CYANOCOBALAMIN
     Indication: Product used for unknown indication
     Dosage: CYANOCOBALAMIN 1000 MCG/ML INJECTABLE SOLUTION) 1,000 MCG 1 ML
     Route: 058
  6. ACETAMINOPHEN\HYDROCODONE [Concomitant]
     Active Substance: ACETAMINOPHEN\HYDROCODONE
     Indication: Pain
     Dosage: HYDROCODONE-ACETAMINOPHEN 5 MG-325 MG ORAL TABLET EVERY 6 HR PRN (AS NEEDED FOR PAIN)
     Route: 048
  7. LACTULOSE [Concomitant]
     Active Substance: LACTULOSE
     Indication: Hepatic encephalopathy
     Dosage: LACTULOSE 10 G/15 ML ORAL SYRUP 20 GM = 30 ML
     Route: 048
  8. LEVOTHYROXINE [Concomitant]
     Active Substance: LEVOTHYROXINE\LEVOTHYROXINE SODIUM
     Indication: Product used for unknown indication
     Dosage: LEVOTHYROXINE 50 MCG (0.05 MG) ORAL TABLET) 75 MCG=1.5 TAB(S)
     Route: 048
  9. OMEPRAZOLE [Concomitant]
     Active Substance: DONEPEZIL HYDROCHLORIDE\OMEPRAZOLE\OMEPRAZOLE MAGNESIUM
     Indication: Product used for unknown indication
     Dosage: OMEPRAZOLE 40 MG ORAL DELAYED RELEASE CAPSULE, NIGHTLY (BEDTIME)
     Route: 048
  10. TRAZODONE [Concomitant]
     Active Substance: TRAZODONE HYDROCHLORIDE
     Indication: Product used for unknown indication
     Dosage: (TRAZODONE 50 MG ORAL TABLET) 100 MG = 2 TAB(S) - ORAL - NIGHTLY (BEDTIME)
     Route: 048
  11. TRAZODONE [Concomitant]
     Active Substance: TRAZODONE HYDROCHLORIDE
     Dosage: (TRAZODONE 150 MG ORAL TABLET) 150 MG = 1 TAB(S) - ORAL - NIGHTLY (BEDTIME)
     Route: 048
  12. VENLAFAXINE [Concomitant]
     Active Substance: VENLAFAXINE HYDROCHLORIDE
     Indication: Product used for unknown indication
     Route: 048
  13. ALPRAZOLAM [Concomitant]
     Active Substance: ALPRAZOLAM
     Indication: Anxiety
     Route: 048
  14. FUROSEMIDE [Concomitant]
     Active Substance: FUROSEMIDE
     Indication: Anxiety
     Dosage: FUROSEMIDE 40 MG ORAL TABLET, 60 MG 1.5 TAB(S) - ORAL - DAILY-30 DAY(S)
     Route: 048

REACTIONS (1)
  - Hepatic cancer [Unknown]
